FAERS Safety Report 6624052-3 (Version None)
Quarter: 2010Q1

REPORT INFORMATION
  Report Type: 
  Country: None (occurrence: None)
  Receive Date: 20100310
  Receipt Date: 20100225
  Transmission Date: 20100710
  Serious: Yes (Death, Life-Threatening, Other)
  Sender: FDA-Public Use
  Company Number: HK-ELI_LILLY_AND_COMPANY-HK201003000480

PATIENT
  Age: 48 Year
  Sex: Female

DRUGS (6)
  1. DULOXETINE HYDROCHLORIDE [Suspect]
     Indication: DEPRESSED MOOD
     Dosage: 30 MG, EACH MORNING
     Route: 065
     Dates: start: 20071205, end: 20071208
  2. MIRTAZAPINE [Concomitant]
     Dosage: 30 MG, AT NIGHT
     Route: 065
  3. MIRTAZAPINE [Concomitant]
     Dosage: 45 MG, AT NIGHT
     Route: 065
     Dates: start: 20070815
  4. ZOPICLONE [Concomitant]
     Dosage: 7.5 MG, BEFORE SLEEPING
     Route: 065
  5. ZOPICLONE [Concomitant]
     Dosage: 11.25 MG, BEFORE SLEEPING, WHEN NECESSARY
     Route: 065
  6. THIORIDAZINE HCL [Concomitant]
     Indication: SLEEP DISORDER
     Dosage: 50 MG, AT NIGHT
     Route: 065
     Dates: start: 20071010, end: 20071205

REACTIONS (6)
  - CARDIAC ARREST [None]
  - DRUG INTERACTION [None]
  - GRAND MAL CONVULSION [None]
  - PULMONARY ARTERIOPATHY [None]
  - PULMONARY HYPERTENSION [None]
  - RESPIRATORY ARREST [None]
